FAERS Safety Report 14769975 (Version 2)
Quarter: 2018Q3

REPORT INFORMATION
  Report Type: Spontaneous
  Country: NL (occurrence: NL)
  Receive Date: 20180417
  Receipt Date: 20180827
  Transmission Date: 20181010
  Serious: Yes (Death, Other)
  Sender: FDA-Public Use
  Company Number: NL-MPIJNJ-2007_00870

PATIENT
  Age: 12 Month

DRUGS (1)
  1. VELCADE [Suspect]
     Active Substance: BORTEZOMIB
     Indication: PRODUCT USED FOR UNKNOWN INDICATION
     Dosage: 2.3 MG, UNK
     Route: 042

REACTIONS (2)
  - Death [Fatal]
  - Epilepsy [Unknown]
